FAERS Safety Report 14654422 (Version 1)
Quarter: 2018Q1

REPORT INFORMATION
  Report Type: Spontaneous
  Country: US (occurrence: US)
  Receive Date: 20180319
  Receipt Date: 20180319
  Transmission Date: 20180509
  Serious: No
  Sender: FDA-Public Use
  Company Number: US-JNJFOC-20180238553

PATIENT
  Sex: Female
  Weight: 54.43 kg

DRUGS (1)
  1. TYLENOL EXTRA STRENGTH [Suspect]
     Active Substance: ACETAMINOPHEN
     Indication: ARTHRALGIA
     Dosage: 2 IN THE MORNING AND 2 IN THE NIGHT.??HAS BEEN TAKING THEM FROM A COUPLE MONTHS
     Route: 048

REACTIONS (2)
  - Dizziness [Unknown]
  - Inappropriate schedule of drug administration [Unknown]
